FAERS Safety Report 5271423-6 (Version None)
Quarter: 2007Q1

REPORT INFORMATION
  Report Type: 
  Country: None (occurrence: None)
  Receive Date: 20070321
  Receipt Date: 20070319
  Transmission Date: 20070707
  Serious: Yes (Hospitalization, Other)
  Sender: FDA-Public Use
  Company Number: DE-BRISTOL-MYERS SQUIBB COMPANY-13683388

PATIENT
  Age: 52 Year
  Sex: Male
  Weight: 85 kg

DRUGS (9)
  1. VIDEX [Suspect]
     Indication: HIV INFECTION
     Dates: start: 19980501
  2. NORVIR [Suspect]
     Indication: HIV INFECTION
     Dates: start: 20011201
  3. TELZIR [Suspect]
     Indication: HIV INFECTION
     Dates: start: 20041201
  4. VIREAD [Suspect]
     Indication: HIV INFECTION
     Dates: start: 20030101
  5. VENLAFAXINE HCL [Concomitant]
     Dates: start: 20060601, end: 20070201
  6. CITALOPRAM HYDROBROMIDE [Concomitant]
  7. PLANUM [Concomitant]
  8. VIRASTATIN [Concomitant]
  9. ASCORBIC ACID [Concomitant]

REACTIONS (4)
  - BRADYPHRENIA [None]
  - DEPRESSED MOOD [None]
  - DISTURBANCE IN ATTENTION [None]
  - IMPAIRED WORK ABILITY [None]
